FAERS Safety Report 24008307 (Version 2)
Quarter: 2024Q3

REPORT INFORMATION
  Report Type: Spontaneous
  Country: US (occurrence: US)
  Receive Date: 20240625
  Receipt Date: 20240701
  Transmission Date: 20241017
  Serious: No
  Sender: AMGEN
  Company Number: US-AMGEN-USASP2024124624

PATIENT
  Age: 77 Year
  Sex: Female

DRUGS (2)
  1. KRYSTEXXA [Suspect]
     Active Substance: PEGLOTICASE
     Indication: Gouty arthritis
     Dosage: UNK, Q2WK
     Route: 042
     Dates: start: 202401
  2. KRYSTEXXA [Suspect]
     Active Substance: PEGLOTICASE
     Indication: Gouty tophus

REACTIONS (1)
  - Scleral haemorrhage [Unknown]

NARRATIVE: CASE EVENT DATE: 20240101
